FAERS Safety Report 7392730-7 (Version None)
Quarter: 2011Q2

REPORT INFORMATION
  Report Type: 
  Country: None (occurrence: None)
  Receive Date: 20110404
  Receipt Date: 20110328
  Transmission Date: 20111010
  Serious: Yes (Hospitalization)
  Sender: FDA-Public Use
  Company Number: US-ASTRAZENECA-2011SE00639

PATIENT
  Age: 60 Year
  Sex: Female

DRUGS (5)
  1. NEXIUM [Suspect]
     Indication: GASTROOESOPHAGEAL REFLUX DISEASE
     Route: 048
  2. ATACAND HCT [Suspect]
     Route: 048
  3. PREDNISONE [Concomitant]
  4. PULMICORT [Suspect]
     Route: 055
  5. PULMICORT [Suspect]
     Route: 055

REACTIONS (5)
  - EXPIRED DRUG ADMINISTERED [None]
  - HOSPITALISATION [None]
  - ASTHMA [None]
  - DRUG DOSE OMISSION [None]
  - GASTROOESOPHAGEAL REFLUX DISEASE [None]
